FAERS Safety Report 10278709 (Version 2)
Quarter: 2014Q3

REPORT INFORMATION
  Report Type: Report from Study
  Country: JP (occurrence: JP)
  Receive Date: 20140705
  Receipt Date: 20140705
  Transmission Date: 20150326
  Serious: Yes (Other)
  Sender: FDA-Public Use
  Company Number: JP-ACCORD-024491

PATIENT

DRUGS (3)
  1. BASILIXIMAB [Concomitant]
     Active Substance: BASILIXIMAB
     Dosage: ON THE DAY OF TRANSPLANTATION AND ON THE POSTOPERATIVE DAY 4.
  2. MYCOPHENOLIC ACID [Suspect]
     Active Substance: MYCOPHENOLIC ACID
     Indication: RENAL TRANSPLANT
     Dosage: RECEIVED PRETRANSPLANT AND POSTOPERATIVE DOSE OF MMF 1 G/DAY
  3. RITUXIMAB [Suspect]
     Active Substance: RITUXIMAB
     Indication: RENAL TRANSPLANT
     Dosage: RECEIVED ON 2 WEEK PRIOR TRANSPLANTATION AND ON THE DAY OF TRANSPLANTATION

REACTIONS (2)
  - Neutropenia [Recovered/Resolved]
  - Kidney transplant rejection [Unknown]
